FAERS Safety Report 6194453-9 (Version None)
Quarter: 2009Q2

REPORT INFORMATION
  Report Type: 
  Country: None (occurrence: None)
  Receive Date: 20090519
  Receipt Date: 20081229
  Transmission Date: 20091009
  Serious: No
  Sender: FDA-Public Use
  Company Number: US-TYCO HEALTHCARE/MALLINCKRODT-T200802177

PATIENT
  Sex: Female
  Weight: 22.676 kg

DRUGS (1)
  1. DEXTROAMPHETAMINE SULFATE EXTENDED-RELEASE [Suspect]
     Indication: ATTENTION DEFICIT/HYPERACTIVITY DISORDER
     Dosage: 10 MG, QD
     Route: 048
     Dates: start: 20081227, end: 20081228

REACTIONS (4)
  - DRUG DOSE OMISSION [None]
  - ERYTHEMA [None]
  - PRURITUS [None]
  - URTICARIA [None]
